APPROVED DRUG PRODUCT: ACETAZOLAMIDE
Active Ingredient: ACETAZOLAMIDE
Strength: 500MG
Dosage Form/Route: CAPSULE, EXTENDED RELEASE;ORAL
Application: A207659 | Product #001 | TE Code: AB
Applicant: ACCORD HEALTHCARE INC
Approved: Oct 18, 2018 | RLD: No | RS: No | Type: RX